FAERS Safety Report 4857232-8 (Version None)
Quarter: 2005Q4

REPORT INFORMATION
  Report Type: 
  Country: None (occurrence: None)
  Receive Date: 20051219
  Receipt Date: 20050719
  Transmission Date: 20060501
  Serious: No
  Sender: FDA-Public Use
  Company Number: US-GLAXOSMITHKLINE-A0566818A

PATIENT
  Age: 32 Year
  Sex: Male

DRUGS (5)
  1. NICODERM CQ [Suspect]
  2. NICODERM CQ [Suspect]
  3. CEPHALEXIN [Concomitant]
  4. LEVAQUIN [Concomitant]
  5. VALTREX [Concomitant]

REACTIONS (3)
  - COUGH [None]
  - DIZZINESS [None]
  - RHINORRHOEA [None]
